FAERS Safety Report 7128298-X (Version None)
Quarter: 2010Q4

REPORT INFORMATION
  Report Type: 
  Country: None (occurrence: None)
  Receive Date: 20101130
  Receipt Date: 20101118
  Transmission Date: 20110411
  Serious: Yes (Other)
  Sender: FDA-Public Use
  Company Number: DE-PFIZER INC-2010159567

PATIENT
  Sex: Male
  Weight: 64 kg

DRUGS (1)
  1. PANTOPRAZOLE [Suspect]
     Indication: NAUSEA
     Dosage: 20 MG, UNK
     Route: 048

REACTIONS (2)
  - ABDOMINAL PAIN [None]
  - LOSS OF CONSCIOUSNESS [None]
